FAERS Safety Report 9007005 (Version 1)
Quarter: 2013Q1

REPORT INFORMATION
  Report Type: Report from Study
  Country: BR (occurrence: BR)
  Receive Date: 20130110
  Receipt Date: 20130110
  Transmission Date: 20140127
  Serious: Yes (Other)
  Sender: FDA-Public Use
  Company Number: BR-ASTRAZENECA-2013SE01056

PATIENT
  Sex: Female

DRUGS (6)
  1. ATACAND [Suspect]
     Indication: BLOOD PRESSURE DIASTOLIC INCREASED
     Route: 048
     Dates: start: 2009, end: 2012
  2. ATACAND [Suspect]
     Indication: ANGINA PECTORIS
     Route: 048
     Dates: start: 2009, end: 2012
  3. ATACAND [Suspect]
     Indication: ARRHYTHMIA
     Route: 048
     Dates: start: 2009, end: 2012
  4. ATACAND HCT [Suspect]
     Indication: BLOOD PRESSURE DIASTOLIC INCREASED
     Dosage: 16/12.5 MG
     Route: 048
     Dates: start: 2012
  5. ATACAND HCT [Suspect]
     Indication: ANGINA PECTORIS
     Dosage: 16/12.5 MG
     Route: 048
     Dates: start: 2012
  6. ATACAND HCT [Suspect]
     Indication: ARRHYTHMIA
     Dosage: 16/12.5 MG
     Route: 048
     Dates: start: 2012

REACTIONS (3)
  - Hypertension [Not Recovered/Not Resolved]
  - Chest pain [Unknown]
  - Drug ineffective [Unknown]
